FAERS Safety Report 7141032-2 (Version None)
Quarter: 2010Q4

REPORT INFORMATION
  Report Type: 
  Country: None (occurrence: None)
  Receive Date: 20101207
  Receipt Date: 20101124
  Transmission Date: 20110411
  Serious: Yes (Hospitalization)
  Sender: FDA-Public Use
  Company Number: FR-JNJFOC-20101201825

PATIENT
  Sex: Female

DRUGS (6)
  1. IXPRIM [Suspect]
     Indication: PAIN IN EXTREMITY
     Route: 048
  2. PYOSTACINE [Suspect]
     Indication: INFECTION
     Route: 048
  3. LASIX [Suspect]
     Indication: PRODUCT USED FOR UNKNOWN INDICATION
     Route: 048
  4. LYRICA [Concomitant]
  5. LISINOPRIL AND HYDROCHLOROTHIAZIDE [Concomitant]
  6. ZANIDIP [Concomitant]

REACTIONS (5)
  - DIARRHOEA [None]
  - FALL [None]
  - HYPOTENSION [None]
  - RENAL FAILURE ACUTE [None]
  - VOMITING [None]
